FAERS Safety Report 9285404 (Version 3)
Quarter: 2013Q2

REPORT INFORMATION
  Report Type: Spontaneous
  Country: US (occurrence: US)
  Receive Date: 20130513
  Receipt Date: 20130627
  Transmission Date: 20140414
  Serious: No
  Sender: FDA-Public Use
  Company Number: US-PFIZER INC-2013144203

PATIENT
  Age: 63 Year
  Sex: Female

DRUGS (3)
  1. ADVIL ALLERGY AND CONGESTION RELIEF [Suspect]
     Indication: HYPERSENSITIVITY
     Dosage: UNK
     Dates: start: 20130504
  2. ADVIL ALLERGY SINUS [Suspect]
     Dosage: UNK
  3. NASONEX [Concomitant]
     Indication: HYPERSENSITIVITY
     Dosage: UNK, DAILY
     Dates: start: 20130503

REACTIONS (2)
  - Drug ineffective [Unknown]
  - Somnolence [Unknown]
